FAERS Safety Report 7674563-7 (Version None)
Quarter: 2011Q3

REPORT INFORMATION
  Report Type: 
  Country: None (occurrence: None)
  Receive Date: 20110810
  Receipt Date: 20110801
  Transmission Date: 20111222
  Serious: Yes (Hospitalization)
  Sender: FDA-Public Use
  Company Number: JP-ROCHE-787871

PATIENT
  Sex: Male
  Weight: 45 kg

DRUGS (8)
  1. LYRICA [Concomitant]
     Route: 048
     Dates: start: 20101119
  2. RHEUMATREX [Concomitant]
     Route: 048
     Dates: start: 20080703
  3. DIGOXIN [Concomitant]
     Route: 048
     Dates: start: 20100413
  4. LOXONIN [Concomitant]
     Route: 048
     Dates: start: 20080428
  5. ACTEMRA [Suspect]
     Indication: RHEUMATOID ARTHRITIS
     Dosage: DOSAGE IS UNCERTAIN.
     Route: 041
     Dates: start: 20110428, end: 20110605
  6. FUROSEMIDE [Concomitant]
     Route: 048
     Dates: start: 20100413
  7. PREDNISOLONE [Concomitant]
     Route: 042
     Dates: start: 20080428
  8. PRELONE [Concomitant]
     Route: 048
     Dates: start: 20080601

REACTIONS (3)
  - ANAPHYLACTIC SHOCK [None]
  - VOMITING [None]
  - NAUSEA [None]
